FAERS Safety Report 5209023-6 (Version None)
Quarter: 2007Q1

REPORT INFORMATION
  Report Type: 
  Country: None (occurrence: None)
  Receive Date: 20070116
  Receipt Date: 20070109
  Transmission Date: 20070707
  Serious: Yes (Hospitalization)
  Sender: FDA-Public Use
  Company Number: US-MERCK-0701USA00997

PATIENT
  Age: 65 Year
  Sex: Female

DRUGS (3)
  1. JANUVIA [Suspect]
     Indication: DIABETES MELLITUS
     Route: 048
     Dates: end: 20070108
  2. METFORMIN [Concomitant]
     Route: 065
  3. LANTUS [Concomitant]
     Route: 065

REACTIONS (1)
  - HYPERGLYCAEMIA [None]
